FAERS Safety Report 4645562-4 (Version None)
Quarter: 2005Q2

REPORT INFORMATION
  Report Type: 
  Country: None (occurrence: None)
  Receive Date: 20050425
  Receipt Date: 20050411
  Transmission Date: 20051028
  Serious: Yes (Other)
  Sender: FDA-Public Use
  Company Number: 2005043372

PATIENT
  Age: 59 Month
  Sex: Female
  Weight: 19 kg

DRUGS (6)
  1. PREDNISONE [Suspect]
     Indication: NEPHROTIC SYNDROME
     Dosage: UNKNOWN (1 D), UNKNOWN
     Route: 065
     Dates: start: 20010401, end: 20030401
  2. CYCLOPHOSPHAMIDE [Suspect]
     Indication: ILL-DEFINED DISORDER
     Dosage: UNKNOWN
     Route: 065
  3. CYCLOSPORINE [Concomitant]
  4. METHYLPREDNISOLONE [Concomitant]
  5. IMMUNE GLOBULIN INTRAVENOUS (HUMAN) [Concomitant]
  6. FLUVASTATIN (FLUVASTATIN) [Concomitant]

REACTIONS (8)
  - BACK PAIN [None]
  - BODY HEIGHT DECREASED [None]
  - BONE DENSITY DECREASED [None]
  - CYSTITIS HAEMORRHAGIC [None]
  - LIPOMATOSIS [None]
  - SPINAL COMPRESSION FRACTURE [None]
  - THERAPY NON-RESPONDER [None]
  - WEIGHT INCREASED [None]
